FAERS Safety Report 19481850 (Version 2)
Quarter: 2021Q3

REPORT INFORMATION
  Report Type: Spontaneous
  Country: US (occurrence: US)
  Receive Date: 20210701
  Receipt Date: 20210820
  Transmission Date: 20211014
  Serious: Yes (Hospitalization)
  Sender: FDA-Public Use
  Company Number: US-TEVA-2021-US-1927352

PATIENT
  Age: 3 Decade
  Sex: Female

DRUGS (1)
  1. TESTOSTERONE CYPIONATE. [Suspect]
     Active Substance: TESTOSTERONE CYPIONATE
     Indication: GENDER REASSIGNMENT THERAPY
     Dosage: BIMONTHLY
     Route: 030

REACTIONS (2)
  - Spontaneous cerebrospinal fluid leak syndrome [Recovered/Resolved]
  - Idiopathic intracranial hypertension [Recovering/Resolving]
